FAERS Safety Report 20135256 (Version 1)
Quarter: 2021Q4

REPORT INFORMATION
  Report Type: Report from Study
  Country: US (occurrence: US)
  Receive Date: 20211201
  Receipt Date: 20211201
  Transmission Date: 20220303
  Serious: Yes (Hospitalization, Other)
  Sender: FDA-Public Use
  Company Number: US-GILEAD-2021-0558348

PATIENT
  Age: 10 Year
  Sex: Male

DRUGS (2)
  1. AZTREONAM LYSINE [Suspect]
     Active Substance: AZTREONAM LYSINE
     Indication: Burkholderia mallei infection
     Dosage: 75 MG, TID, 28 DAYS ON AND 28 DAYS OFF
     Route: 065
     Dates: start: 202011
  2. AZTREONAM LYSINE [Suspect]
     Active Substance: AZTREONAM LYSINE
     Indication: Cystic fibrosis

REACTIONS (2)
  - Cystic fibrosis [Unknown]
  - Off label use [Not Recovered/Not Resolved]
